FAERS Safety Report 14070883 (Version 4)
Quarter: 2017Q4

REPORT INFORMATION
  Report Type: Report from Study
  Country: CA (occurrence: CA)
  Receive Date: 20171011
  Receipt Date: 20171206
  Transmission Date: 20180321
  Serious: Yes (Hospitalization)
  Sender: FDA-Public Use
  Company Number: CA-AMGEN-CANSL2017150334

PATIENT
  Age: 76 Year
  Sex: Female

DRUGS (1)
  1. XGEVA [Suspect]
     Active Substance: DENOSUMAB
     Indication: BREAST CANCER
     Dosage: 120 MG/1.7 ML, UNK
     Route: 065
     Dates: start: 20160602

REACTIONS (4)
  - Blood potassium decreased [Unknown]
  - Weight decreased [Unknown]
  - Nausea [Unknown]
  - Unevaluable event [Unknown]
